APPROVED DRUG PRODUCT: CLORAZEPATE DIPOTASSIUM
Active Ingredient: CLORAZEPATE DIPOTASSIUM
Strength: 7.5MG
Dosage Form/Route: TABLET;ORAL
Application: A215566 | Product #002 | TE Code: AB
Applicant: COREPHARMA LLC
Approved: Jun 14, 2022 | RLD: No | RS: No | Type: RX